FAERS Safety Report 6088529-4 (Version None)
Quarter: 2009Q1

REPORT INFORMATION
  Report Type: 
  Country: None (occurrence: None)
  Receive Date: 20090219
  Receipt Date: 20090206
  Transmission Date: 20090719
  Serious: Yes (Hospitalization, Congenital Anomaly)
  Sender: FDA-Public Use
  Company Number: 1000004769

PATIENT
  Age: 0 Day
  Sex: Female
  Weight: 3.13 kg

DRUGS (4)
  1. CITALOPRAM HYDROBROMIDE [Suspect]
     Dosage: TRANSPLACENTAL
     Route: 064
     Dates: end: 20071225
  2. HALDOL [Suspect]
     Dosage: TRANSPLACENTAL
     Route: 064
     Dates: end: 20071225
  3. PRAXINOR [Suspect]
     Indication: DRUG EXPOSURE DURING PREGNANCY
     Dosage: TRANSPLACENTAL
     Route: 064
     Dates: end: 20071225
  4. LEXOMIL [Suspect]
     Dosage: TRANSPLACENTAL
     Route: 064
     Dates: end: 20071225

REACTIONS (9)
  - BLOOD CREATININE INCREASED [None]
  - FEEDING DISORDER NEONATAL [None]
  - FOETAL GROWTH RETARDATION [None]
  - HYPOTONIA NEONATAL [None]
  - HYPOVENTILATION NEONATAL [None]
  - INFANTILE APNOEIC ATTACK [None]
  - MATERNAL DRUGS AFFECTING FOETUS [None]
  - MICROCEPHALY [None]
  - RENAL HYPOPLASIA [None]
